FAERS Safety Report 10206661 (Version 1)
Quarter: 2014Q2

REPORT INFORMATION
  Report Type: Spontaneous
  Country: GB (occurrence: GB)
  Receive Date: 20140530
  Receipt Date: 20140530
  Transmission Date: 20141212
  Serious: Yes (Other)
  Sender: FDA-Public Use
  Company Number: GB-JNJFOC-20140511772

PATIENT
  Age: 52 Year
  Sex: Female
  Weight: 55 kg

DRUGS (4)
  1. NORETHISTERONE [Suspect]
     Indication: PRODUCT USED FOR UNKNOWN INDICATION
     Route: 065
  2. TRAVOPROST [Concomitant]
     Route: 065
     Dates: start: 20140320, end: 20140417
  3. UTOVLAN [Concomitant]
     Route: 065
     Dates: start: 20140414, end: 20140424
  4. DIPROBASE [Concomitant]
     Route: 065
     Dates: start: 20140414

REACTIONS (2)
  - Chest discomfort [Recovered/Resolved]
  - Chest pain [Unknown]
